FAERS Safety Report 5084913-6 (Version None)
Quarter: 2006Q3

REPORT INFORMATION
  Report Type: 
  Country: None (occurrence: None)
  Receive Date: 20060821
  Receipt Date: 20060817
  Transmission Date: 20061208
  Serious: Yes (Other)
  Sender: FDA-Public Use
  Company Number: ZA-BOEHRINGER INGELHEIM PHARMACEUTICALS, INC.-2006-DE-04290GD

PATIENT

DRUGS (1)
  1. NEVIRAPINE [Suspect]
     Indication: PROPHYLAXIS AGAINST HIV INFECTION

REACTIONS (1)
  - HIV INFECTION [None]
